FAERS Safety Report 7060358-4 (Version None)
Quarter: 2010Q4

REPORT INFORMATION
  Report Type: 
  Country: None (occurrence: None)
  Receive Date: 20101025
  Receipt Date: 20101013
  Transmission Date: 20110411
  Serious: Yes (Hospitalization, Other)
  Sender: FDA-Public Use
  Company Number: B0680456A

PATIENT
  Sex: Male

DRUGS (1)
  1. AUGMENTIN '125' [Suspect]
     Indication: URINARY TRACT INFECTION
     Route: 048
     Dates: start: 20100925

REACTIONS (5)
  - CHOLESTASIS [None]
  - CHROMATURIA [None]
  - DECREASED APPETITE [None]
  - FAECES PALE [None]
  - PRURITUS [None]
